FAERS Safety Report 7275666-1 (Version None)
Quarter: 2011Q1

REPORT INFORMATION
  Report Type: 
  Country: None (occurrence: None)
  Receive Date: 20110204
  Receipt Date: 20101018
  Transmission Date: 20110831
  Serious: No
  Sender: FDA-Public Use
  Company Number: US-BAYER-201023003BCC

PATIENT
  Sex: Male

DRUGS (1)
  1. ALEVE [Suspect]
     Indication: NASOPHARYNGITIS
     Dosage: 440 MG, ONCE
     Route: 048
     Dates: start: 20101017, end: 20101017

REACTIONS (4)
  - FOREIGN BODY [None]
  - GLOSSITIS [None]
  - APPLICATION SITE PAIN [None]
  - ORAL DISCOMFORT [None]
